FAERS Safety Report 6274219-1 (Version None)
Quarter: 2009Q3

REPORT INFORMATION
  Report Type: 
  Country: None (occurrence: None)
  Receive Date: 20090720
  Receipt Date: 20090714
  Transmission Date: 20100115
  Serious: Yes (Death)
  Sender: FDA-Public Use
  Company Number: ES-BRISTOL-MYERS SQUIBB COMPANY-14697320

PATIENT
  Age: 87 Year
  Sex: Female
  Weight: 66 kg

DRUGS (2)
  1. ERBITUX [Suspect]
     Indication: COLON NEOPLASM
     Route: 042
     Dates: start: 20090526, end: 20090526
  2. EPOETIN ALFA [Concomitant]

REACTIONS (1)
  - PULMONARY EMBOLISM [None]
